FAERS Safety Report 5119974-9 (Version None)
Quarter: 2006Q3

REPORT INFORMATION
  Report Type: 
  Country: None (occurrence: None)
  Receive Date: 20060929
  Receipt Date: 20060920
  Transmission Date: 20061208
  Serious: Yes (Hospitalization)
  Sender: FDA-Public Use
  Company Number: 2006113520

PATIENT
  Age: 73 Year
  Sex: Male
  Weight: 41 kg

DRUGS (6)
  1. CABERGOLINE [Suspect]
     Indication: PARKINSON'S DISEASE
     Dosage: 0.5 MG (0.25 MG, 2 IN 1 D), ORAL
     Route: 048
     Dates: start: 20020101, end: 20060915
  2. AMLODIPINE BESILATE (AMLODIPINE) [Concomitant]
  3. CANDESARTAN CILEXETIL (CANDESARTAN CILEXETIL) [Concomitant]
  4. TICLOPIDINE HCL [Concomitant]
  5. NICERGOLINE (NICERGOLINE) [Concomitant]
  6. IBUDILAST (IBUDILAST) [Concomitant]

REACTIONS (6)
  - ANOREXIA [None]
  - EMPHYSEMA [None]
  - INTERSTITIAL LUNG DISEASE [None]
  - PHARYNGEAL ERYTHEMA [None]
  - PHARYNGOLARYNGEAL PAIN [None]
  - THERAPY NON-RESPONDER [None]
